FAERS Safety Report 19873191 (Version 2)
Quarter: 2022Q3

REPORT INFORMATION
  Report Type: Spontaneous
  Country: CA (occurrence: None)
  Receive Date: 20210923
  Receipt Date: 20220701
  Transmission Date: 20221026
  Serious: Yes (Disabling)
  Sender: FDA-Public Use
  Company Number: 2021A727940

PATIENT
  Age: 82 Year
  Sex: Female

DRUGS (13)
  1. TAGRISSO [Suspect]
     Active Substance: OSIMERTINIB
     Indication: Lung neoplasm malignant
     Route: 048
     Dates: start: 202101
  2. TAGRISSO [Suspect]
     Active Substance: OSIMERTINIB
     Indication: Lung neoplasm malignant
     Route: 048
     Dates: start: 202101
  3. DAPAGLIFLOZIN [Concomitant]
     Active Substance: DAPAGLIFLOZIN
  4. ATORVASTATIN [Concomitant]
     Active Substance: ATORVASTATIN
  5. EZETIMIBE [Concomitant]
     Active Substance: EZETIMIBE
  6. FERROUS FUMARATE [Concomitant]
     Active Substance: FERROUS FUMARATE
  7. FUROSEMIDE [Concomitant]
     Active Substance: FUROSEMIDE
  8. GALANTAMINE [Concomitant]
     Active Substance: GALANTAMINE
  9. JANUVIA [Concomitant]
     Active Substance: SITAGLIPTIN PHOSPHATE
  10. LANSOPRAZOLE [Concomitant]
     Active Substance: LANSOPRAZOLE
  11. MEGESTROL ACETATE [Concomitant]
     Active Substance: MEGESTROL ACETATE
  12. MINOCYCLINE [Concomitant]
     Active Substance: MINOCYCLINE HYDROCHLORIDE
  13. PREGABALIN [Concomitant]
     Active Substance: PREGABALIN

REACTIONS (2)
  - Angiopathy [Not Recovered/Not Resolved]
  - Cognitive disorder [Not Recovered/Not Resolved]

NARRATIVE: CASE EVENT DATE: 20210301
